FAERS Safety Report 22114976 (Version 1)
Quarter: 2023Q1

REPORT INFORMATION
  Report Type: Spontaneous
  Country: US (occurrence: US)
  Receive Date: 20230320
  Receipt Date: 20230320
  Transmission Date: 20230417
  Serious: No
  Sender: FDA-Public Use
  Company Number: US-PFIZER INC-202300110372

PATIENT
  Age: 16 Year
  Sex: Male
  Weight: 56.7 kg

DRUGS (2)
  1. GENOTROPIN [Suspect]
     Active Substance: SOMATROPIN
     Indication: Short stature
     Dosage: 3.2 MG, DAILY
     Dates: start: 202006
  2. ANASTROZOLE [Concomitant]
     Active Substance: ANASTROZOLE
     Indication: Growth disorder
     Dosage: 1 MG, DAILY
     Dates: start: 202006

REACTIONS (2)
  - Device mechanical issue [Not Recovered/Not Resolved]
  - Device information output issue [Not Recovered/Not Resolved]

NARRATIVE: CASE EVENT DATE: 20230310
